FAERS Safety Report 8805170 (Version 1)
Quarter: 2012Q4

REPORT INFORMATION
  Report Type: Spontaneous
  Country: FR (occurrence: None)
  Receive Date: 20120917
  Receipt Date: 20120917
  Transmission Date: 20130627
  Serious: Yes (Hospitalization)
  Sender: FDA-Public Use
  Company Number: 1407837

PATIENT
  Age: 54 Year
  Sex: Female

DRUGS (2)
  1. PACLITAXEL [Suspect]
     Indication: OVARIAN CANCER
     Route: 041
     Dates: start: 20120823
  2. SODIUM CHLORIDE [Concomitant]

REACTIONS (4)
  - Paraesthesia [None]
  - Hypertension [None]
  - Erythema [None]
  - Infusion related reaction [None]
